FAERS Safety Report 7768836-7 (Version None)
Quarter: 2011Q3

REPORT INFORMATION
  Report Type: 
  Country: None (occurrence: None)
  Receive Date: 20110922
  Receipt Date: 20110916
  Transmission Date: 20111222
  Serious: Yes (Other)
  Sender: FDA-Public Use
  Company Number: GB-B.I. PHARMACEUTICALS,INC./RIDGEFIELD-2011-UK-00919UK

PATIENT
  Age: 79 Year
  Sex: Female

DRUGS (5)
  1. DABIGATRAN [Suspect]
     Indication: ATRIAL FIBRILLATION
     Route: 065
  2. DABIGATRAN [Suspect]
     Indication: CEREBROVASCULAR ACCIDENT PROPHYLAXIS
  3. BISOPROLOL FUMARATE [Concomitant]
     Indication: ATRIAL FIBRILLATION
     Dosage: 1/1DAY
     Route: 048
     Dates: start: 20090101
  4. MULTAQ [Suspect]
     Indication: ATRIAL FIBRILLATION
     Dosage: 400 MG TWICE DAILY
     Route: 048
     Dates: start: 20110701, end: 20110820
  5. SIMVASTATINA [Concomitant]
     Indication: HYPERLIPIDAEMIA
     Dosage: 1/1DAY
     Route: 048
     Dates: start: 20050101

REACTIONS (4)
  - CARDIAC TAMPONADE [None]
  - RECTAL HAEMORRHAGE [None]
  - DIARRHOEA [None]
  - DRUG INTERACTION [None]
